FAERS Safety Report 9203302 (Version 1)
Quarter: 2013Q2

REPORT INFORMATION
  Report Type: Spontaneous
  Country: US (occurrence: US)
  Receive Date: 20130402
  Receipt Date: 20130402
  Transmission Date: 20140414
  Serious: No
  Sender: FDA-Public Use
  Company Number: US-JNJFOC-20130313119

PATIENT
  Age: 49 Year
  Sex: Female
  Weight: 45.81 kg

DRUGS (3)
  1. INVEGA SUSTENNA [Suspect]
     Indication: SCHIZOPHRENIA
     Route: 030
     Dates: start: 20130312, end: 20130315
  2. INVEGA SUSTENNA [Suspect]
     Indication: SCHIZOPHRENIA
     Route: 030
     Dates: start: 201212, end: 201302
  3. LAMICTAL [Concomitant]
     Indication: PRODUCT USED FOR UNKNOWN INDICATION
     Route: 065

REACTIONS (1)
  - Cogwheel rigidity [Not Recovered/Not Resolved]
